FAERS Safety Report 17736471 (Version 1)
Quarter: 2020Q2

REPORT INFORMATION
  Report Type: Spontaneous
  Country: US (occurrence: US)
  Receive Date: 20200501
  Receipt Date: 20200501
  Transmission Date: 20200714
  Serious: No
  Sender: FDA-Public Use
  Company Number: US-ANIPHARMA-2019-US-011342

PATIENT
  Age: 33 Year
  Sex: Male
  Weight: 65.77 kg

DRUGS (4)
  1. SILDENAFIL. [Suspect]
     Active Substance: SILDENAFIL
     Dosage: 100 MG, ONCE A DAY BUT NOT EVERYDAY, BY MOUTH
     Dates: start: 201904
  2. PROPRANOLOL EXTENDED RELEASE CAPSULES (NON-SPECIFIC) [Suspect]
     Active Substance: PROPRANOLOL HYDROCHLORIDE
     Indication: TREMOR
     Dosage: 120 MG ER, ONCE A DAY, MOUTH
     Route: 048
     Dates: start: 201608
  3. CELEXA [Suspect]
     Active Substance: CITALOPRAM HYDROBROMIDE
     Dosage: 40 MG, DAILY, BY MOUTH
     Dates: start: 201608
  4. VIAGRA [Suspect]
     Active Substance: SILDENAFIL CITRATE
     Dosage: 1 PER DAY, AS NEEDED, BY MOUTH
     Dates: start: 201808, end: 201904

REACTIONS (1)
  - Erectile dysfunction [Unknown]
